FAERS Safety Report 4675478-9 (Version None)
Quarter: 2005Q2

REPORT INFORMATION
  Report Type: 
  Country: None (occurrence: None)
  Receive Date: 20050527
  Receipt Date: 20050317
  Transmission Date: 20051028
  Serious: Yes (Other)
  Sender: FDA-Public Use
  Company Number: US-BRISTOL-MYERS SQUIBB COMPANY-12901922

PATIENT
  Age: 24 Year
  Sex: Female
  Weight: 53 kg

DRUGS (9)
  1. ABILIFY [Suspect]
     Indication: PSYCHOTIC DISORDER
     Route: 048
     Dates: start: 20030901
  2. MOBAN [Suspect]
     Indication: PSYCHOTIC DISORDER
     Dosage: 150 MG/DAY FROM 1997 TO SEP-2003; DECREASED TO 100 MG/DAY IN SEP-2003.
     Dates: start: 19970101
  3. TOPAMAX [Concomitant]
     Indication: GRAND MAL CONVULSION
     Dosage: 150-200 MG TWICE DAILY
     Dates: start: 19990501
  4. TOPAMAX [Concomitant]
     Indication: PETIT MAL EPILEPSY
     Dosage: 150-200 MG TWICE DAILY
     Dates: start: 19990501
  5. NEURONTIN [Concomitant]
     Indication: GRAND MAL CONVULSION
  6. ZARONTIN [Concomitant]
     Indication: CONVULSION
     Dosage: 2-3 CAPS TWICE DAILY
     Route: 048
     Dates: start: 19990501
  7. BENZATROPINE [Concomitant]
     Indication: DYSKINESIA
     Route: 048
  8. MINOCYCLINE HCL [Concomitant]
     Indication: RASH
     Route: 048
  9. ESKALITH CR [Concomitant]
     Indication: BIPOLAR I DISORDER
     Route: 048
     Dates: end: 20050209

REACTIONS (6)
  - ANGER [None]
  - BLOOD PROLACTIN INCREASED [None]
  - CONVULSION [None]
  - PRESCRIBED OVERDOSE [None]
  - VISION BLURRED [None]
  - WEIGHT INCREASED [None]
